FAERS Safety Report 13036351 (Version 1)
Quarter: 2016Q4

REPORT INFORMATION
  Report Type: Spontaneous
  Country: US (occurrence: US)
  Receive Date: 20161216
  Receipt Date: 20161216
  Transmission Date: 20170207
  Serious: No
  Sender: FDA-Public Use
  Company Number: US-TAKEDA-2016TUS021800

PATIENT
  Sex: Male

DRUGS (2)
  1. ENTYVIO [Suspect]
     Active Substance: VEDOLIZUMAB
     Indication: PRODUCT USED FOR UNKNOWN INDICATION
     Dosage: 300 MG, UNK
     Route: 065
  2. MUCINEX DM [Concomitant]
     Active Substance: DEXTROMETHORPHAN HYDROBROMIDE\GUAIFENESIN
     Indication: BRONCHITIS
     Dosage: UNK
     Route: 048
     Dates: start: 20161201

REACTIONS (12)
  - Hyperhidrosis [Not Recovered/Not Resolved]
  - Tooth extraction [Unknown]
  - Nausea [Unknown]
  - Respiratory tract congestion [Not Recovered/Not Resolved]
  - Vomiting [Unknown]
  - Productive cough [Unknown]
  - Headache [Not Recovered/Not Resolved]
  - Weight increased [Unknown]
  - Swelling [Not Recovered/Not Resolved]
  - Blood pressure increased [Unknown]
  - Bronchitis [Unknown]
  - Wheezing [Unknown]

NARRATIVE: CASE EVENT DATE: 20161201
